FAERS Safety Report 6591349-5 (Version None)
Quarter: 2010Q1

REPORT INFORMATION
  Report Type: 
  Country: None (occurrence: None)
  Receive Date: 20100219
  Receipt Date: 20100217
  Transmission Date: 20100710
  Serious: Yes (Life-Threatening, Hospitalization, Other)
  Sender: FDA-Public Use
  Company Number: US-B.I. PHARMACEUTICALS,INC./RIDGEFIELD-2010-BP-01969BP

PATIENT
  Sex: Female

DRUGS (2)
  1. COMBIVENT [Suspect]
     Indication: ASTHMA
     Dosage: 6 PUF
     Route: 055
     Dates: start: 20100215
  2. COMBIVENT [Suspect]
     Indication: COUGH
     Dosage: 6 PUF
     Route: 055
     Dates: start: 20050101, end: 20100104

REACTIONS (5)
  - ABDOMINAL HERNIA [None]
  - ABDOMINAL HERNIA GANGRENOUS [None]
  - ABDOMINAL STRANGULATED HERNIA [None]
  - INTESTINAL OBSTRUCTION [None]
  - VOMITING [None]
